FAERS Safety Report 6788589-9 (Version None)
Quarter: 2010Q2

REPORT INFORMATION
  Report Type: 
  Country: None (occurrence: None)
  Receive Date: 20100623
  Receipt Date: 20080502
  Transmission Date: 20101027
  Serious: No
  Sender: FDA-Public Use
  Company Number: US-PFIZER INC-2008029128

PATIENT
  Sex: Male

DRUGS (4)
  1. XALATAN [Suspect]
     Route: 047
  2. ENALAPRIL MALEATE [Concomitant]
  3. FUROSEMIDE [Concomitant]
  4. POTASSIUM [Concomitant]

REACTIONS (1)
  - DRUG INEFFECTIVE [None]
